FAERS Safety Report 23674432 (Version 1)
Quarter: 2024Q1

REPORT INFORMATION
  Report Type: Spontaneous
  Country: US (occurrence: US)
  Receive Date: 20240326
  Receipt Date: 20240326
  Transmission Date: 20240410
  Serious: No
  Sender: FDA-Public Use
  Company Number: US-SA-SAC20240326000056

PATIENT
  Age: 65 Year
  Sex: Male

DRUGS (1)
  1. DUPIXENT [Suspect]
     Active Substance: DUPILUMAB
     Indication: Dermatitis atopic
     Dosage: DOSE OR AMOUNT : 300MG FREQUENCY : EVERY OTHER WEEK
     Route: 058

REACTIONS (4)
  - Influenza like illness [Unknown]
  - Pyrexia [Unknown]
  - Headache [Unknown]
  - Oropharyngeal pain [Unknown]
